FAERS Safety Report 5084981-1 (Version None)
Quarter: 2006Q3

REPORT INFORMATION
  Report Type: 
  Country: None (occurrence: None)
  Receive Date: 20060814
  Receipt Date: 20060728
  Transmission Date: 20061208
  Serious: Yes (Other)
  Sender: FDA-Public Use
  Company Number: US200607005400

PATIENT
  Sex: Male

DRUGS (7)
  1. GEMZAR [Suspect]
     Indication: NEOPLASM MALIGNANT
     Dosage: 2400 MG INTRAVENOUS
     Route: 042
     Dates: start: 20060407, end: 20060721
  2. ERBITUX /USA/ (CETIXUMAB) [Concomitant]
  3. PACLITAXEL [Concomitant]
  4. ZOMETA [Concomitant]
  5. ACETAMINOPHEN [Concomitant]
  6. DEXMETHASONE [Concomitant]
  7. DIPHENHYDRAMINE [Concomitant]

REACTIONS (1)
  - DEEP VEIN THROMBOSIS [None]
